FAERS Safety Report 22609304 (Version 1)
Quarter: 2023Q2

REPORT INFORMATION
  Report Type: Spontaneous
  Country: US (occurrence: None)
  Receive Date: 20230616
  Receipt Date: 20230616
  Transmission Date: 20230722
  Serious: Yes (Other)
  Sender: FDA-Public Use
  Company Number: 2023A135989

PATIENT

DRUGS (1)
  1. SAPHNELO [Suspect]
     Active Substance: ANIFROLUMAB-FNIA
     Route: 042

REACTIONS (23)
  - Anuria [Unknown]
  - Anxiety [Unknown]
  - Dizziness [Unknown]
  - Abdominal distension [Unknown]
  - Blood pressure increased [Unknown]
  - Disorientation [Unknown]
  - Memory impairment [Unknown]
  - Pain [Unknown]
  - Abdominal pain upper [Unknown]
  - Fatigue [Unknown]
  - Asthenia [Unknown]
  - Dyspnoea [Unknown]
  - Muscle spasms [Unknown]
  - Neck pain [Unknown]
  - Pain in extremity [Unknown]
  - Speech disorder [Unknown]
  - Flatulence [Unknown]
  - Eructation [Unknown]
  - Feeling abnormal [Unknown]
  - Confusional state [Unknown]
  - Dry eye [Unknown]
  - Cough [Unknown]
  - Oropharyngeal pain [Unknown]
